FAERS Safety Report 5694901-4 (Version None)
Quarter: 2008Q2

REPORT INFORMATION
  Report Type: 
  Country: None (occurrence: None)
  Receive Date: 20080404
  Receipt Date: 20080331
  Transmission Date: 20081010
  Serious: Yes (Hospitalization)
  Sender: FDA-Public Use
  Company Number: LB-WYE-H02894008

PATIENT
  Sex: Female
  Weight: 55 kg

DRUGS (4)
  1. AMOXICILLIN + CLAVULANATE POTASSIUM [Suspect]
     Indication: CELLULITIS
     Route: 041
     Dates: start: 20080219, end: 20080226
  2. TANAKAN [Concomitant]
  3. PEITEL [Concomitant]
  4. NEUROBION [Concomitant]

REACTIONS (1)
  - URINARY TRACT INFECTION [None]
